FAERS Safety Report 9822040 (Version 5)
Quarter: 2014Q1

REPORT INFORMATION
  Report Type: Spontaneous
  Country: US (occurrence: US)
  Receive Date: 20140116
  Receipt Date: 20140321
  Transmission Date: 20141002
  Serious: Yes (Life-Threatening, Hospitalization, Disabling, Other)
  Sender: FDA-Public Use
  Company Number: US-009507513-1401USA007070

PATIENT
  Age: 39 Year
  Sex: Male
  Weight: 113.38 kg

DRUGS (4)
  1. JANUMET [Suspect]
     Indication: TYPE 2 DIABETES MELLITUS
     Dosage: 50-500 MG BID
     Route: 048
     Dates: start: 20101111, end: 20120624
  2. JANUMET [Suspect]
     Dosage: 50-500MG QD
     Route: 048
  3. GLIMEPIRIDE [Concomitant]
     Indication: TYPE 2 DIABETES MELLITUS
  4. METFORMIN [Concomitant]
     Indication: TYPE 2 DIABETES MELLITUS

REACTIONS (43)
  - Adenocarcinoma pancreas [Not Recovered/Not Resolved]
  - Laparotomy [Unknown]
  - Pancreatic sphincterectomy [Unknown]
  - Pancreatic stent placement [Unknown]
  - Cholecystectomy [Unknown]
  - Type 2 diabetes mellitus [Unknown]
  - Hypoxia [Recovering/Resolving]
  - Pancreatitis [Unknown]
  - Fatigue [Unknown]
  - Dizziness [Unknown]
  - Diabetic neuropathy [Unknown]
  - Cough [Unknown]
  - Gastrooesophageal reflux disease [Unknown]
  - Sinusitis [Unknown]
  - Dyspnoea [Unknown]
  - Urine albumin/creatinine ratio abnormal [Unknown]
  - Insomnia [Unknown]
  - Hypertension [Unknown]
  - Cholelithiasis [Unknown]
  - Gastric ulcer [Recovered/Resolved]
  - Renal cyst [Unknown]
  - Pneumonia [Unknown]
  - Pleural effusion [Unknown]
  - Pain in extremity [Unknown]
  - Constipation [Unknown]
  - Localised intraabdominal fluid collection [Unknown]
  - Drain placement [Unknown]
  - Dehydration [Unknown]
  - Dehydration [Unknown]
  - Paracentesis [Unknown]
  - Pancreatitis acute [Unknown]
  - Pancreatitis acute [Unknown]
  - Blood glucose abnormal [Unknown]
  - Pyrexia [Unknown]
  - Postoperative wound complication [Unknown]
  - Oedema peripheral [Unknown]
  - White blood cell count abnormal [Unknown]
  - Haemoglobin abnormal [Unknown]
  - Haematocrit abnormal [Unknown]
  - Platelet count abnormal [Unknown]
  - Anxiety [Unknown]
  - Colitis [Unknown]
  - Enteritis [Unknown]
